FAERS Safety Report 10599383 (Version 4)
Quarter: 2015Q1

REPORT INFORMATION
  Report Type: Report from Study
  Country: JP (occurrence: JP)
  Receive Date: 20141121
  Receipt Date: 20150122
  Transmission Date: 20150720
  Serious: Yes (Other)
  Sender: FDA-Public Use
  Company Number: JP-GLAXOSMITHKLINE-A201315044

PATIENT
  Age: 67 Year
  Sex: Female
  Weight: 56 kg

DRUGS (15)
  1. MAGMITT [Concomitant]
     Active Substance: MAGNESIUM OXIDE
     Indication: PROPHYLAXIS
     Dosage: 1980 MG, TID
     Route: 048
     Dates: start: 20130507, end: 20140109
  2. ALKERAN [Suspect]
     Active Substance: MELPHALAN
     Indication: PLASMA CELL MYELOMA
     Dosage: 12 MG, QD
     Route: 048
     Dates: start: 20130709
  3. THALED [Suspect]
     Active Substance: THALIDOMIDE
     Indication: PLASMA CELL MYELOMA
     Dosage: 100 MG, QD
     Route: 048
     Dates: start: 20130708
  4. DENOTAS [Concomitant]
     Active Substance: CALCIUM CARBONATE\CHOLECALCIFEROL\MAGNESIUM CARBONATE
     Indication: PROPHYLAXIS
     Dosage: 2 DF, QD
     Route: 048
     Dates: start: 20120530, end: 20140109
  5. ADOFEED [Concomitant]
     Active Substance: FLURBIPROFEN
     Route: 062
  6. RANMARK [Concomitant]
     Active Substance: DENOSUMAB
     Indication: PLASMA CELL MYELOMA
     Dosage: 120 MG, QD
     Route: 058
     Dates: start: 20120530, end: 20131217
  7. NEXIUM [Concomitant]
     Active Substance: ESOMEPRAZOLE MAGNESIUM
     Indication: PROPHYLAXIS
     Dosage: 20 MG, QD
     Route: 048
     Dates: start: 20130528, end: 20140109
  8. ATOVAQUONE. [Suspect]
     Active Substance: ATOVAQUONE
     Indication: ANTIFUNGAL PROPHYLAXIS
     Dosage: 1500 MG, QD
     Route: 048
     Dates: start: 20130813, end: 20131030
  9. ACYCLOVIR. [Suspect]
     Active Substance: ACYCLOVIR
     Route: 048
  10. PREDNISOLONE. [Suspect]
     Active Substance: PREDNISOLONE
     Indication: PLASMA CELL MYELOMA
     Route: 048
  11. LENADEX [Suspect]
     Active Substance: DEXAMETHASONE ACETATE
     Indication: PLASMA CELL MYELOMA
     Dosage: 40 MG, QD
     Dates: start: 20130507, end: 20130610
  12. REVLIMID [Suspect]
     Active Substance: LENALIDOMIDE
     Indication: PLASMA CELL MYELOMA
     Dosage: 10 MG, QD
     Dates: start: 20130507, end: 20130610
  13. PREDNISOLONE. [Suspect]
     Active Substance: PREDNISOLONE
     Dosage: 80 MG, QD
     Route: 048
     Dates: start: 20130709
  14. BAYASPIRIN [Concomitant]
     Active Substance: ASPIRIN
     Indication: PROPHYLAXIS
  15. BAYASPIRIN [Concomitant]
     Active Substance: ASPIRIN
     Indication: PROPHYLAXIS
     Dosage: 100 MG, QD
     Route: 048
     Dates: start: 20130507, end: 20140109

REACTIONS (4)
  - Infection susceptibility increased [Unknown]
  - Erythema [Recovering/Resolving]
  - Rash [Recovered/Resolved]
  - Hypersensitivity [Unknown]

NARRATIVE: CASE EVENT DATE: 20131017
